FAERS Safety Report 6269930-2 (Version None)
Quarter: 2009Q3

REPORT INFORMATION
  Report Type: 
  Country: None (occurrence: None)
  Receive Date: 20090714
  Receipt Date: 20090629
  Transmission Date: 20100115
  Serious: Yes (Life-Threatening)
  Sender: FDA-Public Use
  Company Number: 2009001923

PATIENT
  Age: 70 Year
  Sex: Female
  Weight: 56 kg

DRUGS (11)
  1. ERLOTINIB (ERLOTINIB) (TABLET) (ERLOTINIB) [Suspect]
     Indication: LUNG ADENOCARCINOMA
     Dosage: (150 MG, QD), ORAL
     Route: 048
     Dates: start: 20090519, end: 20090602
  2. RHEUMATREX [Concomitant]
  3. MAGLAX [Concomitant]
  4. LOXONIN (LOXOPROFEN SODIUM) [Concomitant]
  5. SELBEX (TEPRENONE) [Concomitant]
  6. OXYCONTIN [Concomitant]
  7. FOSAMAX [Concomitant]
  8. PREDNISOLONE [Concomitant]
  9. FAMOTIDINE [Concomitant]
  10. VERAPAMIL HYDROCHLORIDE [Concomitant]
  11. DECADRON [Concomitant]

REACTIONS (4)
  - BONE MARROW FAILURE [None]
  - LUNG ADENOCARCINOMA [None]
  - MALIGNANT NEOPLASM PROGRESSION [None]
  - VIRAL INFECTION [None]
